FAERS Safety Report 6476550-3 (Version None)
Quarter: 2009Q4

REPORT INFORMATION
  Report Type: 
  Country: None (occurrence: None)
  Receive Date: 20091207
  Receipt Date: 20091201
  Transmission Date: 20100525
  Serious: Yes (Death)
  Sender: FDA-Public Use
  Company Number: DE-CELGENEUS-062-20785-09092033

PATIENT
  Sex: Male
  Weight: 62 kg

DRUGS (9)
  1. THALIDOMIDE [Suspect]
     Indication: PLASMACYTOMA
     Route: 048
     Dates: start: 20090826, end: 20090829
  2. PREDNISOLONE [Suspect]
     Indication: PLASMACYTOMA
     Route: 065
     Dates: start: 20090824, end: 20090829
  3. MELPHALAN [Suspect]
     Indication: PLASMACYTOMA
     Route: 065
     Dates: start: 20090824, end: 20090824
  4. DEXAMETHASONE [Suspect]
     Indication: DRUG USE FOR UNKNOWN INDICATION
     Route: 065
  5. TAVANIC [Concomitant]
     Indication: PROPHYLAXIS
     Route: 065
     Dates: start: 20090823, end: 20090829
  6. DIFLUCAN [Concomitant]
     Indication: PROPHYLAXIS
     Route: 065
     Dates: start: 20090825, end: 20090829
  7. MST [Concomitant]
     Indication: ANALGESIC THERAPY
     Route: 065
     Dates: start: 20090810, end: 20090829
  8. PANTOZOL [Concomitant]
     Indication: PROPHYLAXIS
     Route: 065
     Dates: start: 20090810, end: 20090829
  9. METOCLOPRAMIDE [Concomitant]
     Route: 065
     Dates: start: 20090823, end: 20090829

REACTIONS (3)
  - RESPIRATORY FAILURE [None]
  - SEPSIS [None]
  - SEPTIC SHOCK [None]
